FAERS Safety Report 9705394 (Version 1)
Quarter: 2013Q4

REPORT INFORMATION
  Report Type: Report from Study
  Country: US (occurrence: US)
  Receive Date: 20131122
  Receipt Date: 20131122
  Transmission Date: 20140711
  Serious: Yes (Other)
  Sender: FDA-Public Use
  Company Number: US-ABBVIE-13P-163-1169806-00

PATIENT
  Age: 35 Year
  Sex: Female
  Weight: 61.29 kg

DRUGS (7)
  1. HUMIRA [Suspect]
     Indication: PSORIATIC ARTHROPATHY
     Dates: start: 201301, end: 201302
  2. PRISTIQ [Concomitant]
     Indication: DEPRESSION
  3. SINGULAIR [Concomitant]
     Indication: HYPERSENSITIVITY
  4. FLONASE [Concomitant]
     Indication: HYPERSENSITIVITY
  5. UNKNOWN BIRTH CONTROL [Concomitant]
     Indication: CONTRACEPTION
  6. TRAZODONE [Concomitant]
     Indication: DEPRESSION
  7. NABUMETONE [Concomitant]
     Indication: PAIN

REACTIONS (6)
  - Swelling face [Recovered/Resolved]
  - Vomiting [Recovered/Resolved]
  - Injection site swelling [Recovered/Resolved]
  - Injection site erythema [Recovered/Resolved]
  - Injection site pruritus [Recovered/Resolved]
  - Injection site swelling [Recovered/Resolved]
